FAERS Safety Report 7080621-0 (Version None)
Quarter: 2010Q4

REPORT INFORMATION
  Report Type: 
  Country: None (occurrence: None)
  Receive Date: 20101103
  Receipt Date: 20101025
  Transmission Date: 20110411
  Serious: Yes (Hospitalization)
  Sender: FDA-Public Use
  Company Number: FR-NOVOPROD-314901

PATIENT
  Age: 54 Year
  Sex: Female
  Weight: 75 kg

DRUGS (8)
  1. VICTOZA [Suspect]
     Indication: TYPE 2 DIABETES MELLITUS
     Dosage: 0.6 MG, QD
     Route: 058
     Dates: start: 20100618, end: 20100722
  2. VICTOZA [Suspect]
     Dosage: 1.2 MG, UNK
     Route: 058
     Dates: start: 20100723, end: 20100809
  3. METFORMIN [Concomitant]
     Indication: DIABETES MELLITUS
     Dosage: 1500 MG, QD
     Route: 048
     Dates: start: 20100112
  4. METFORMIN [Concomitant]
     Dosage: 500 MG, QD
     Route: 048
     Dates: start: 20070511, end: 20100112
  5. JANUMET [Concomitant]
  6. GALVUS [Concomitant]
  7. DIAMICRON [Concomitant]
     Indication: DIABETES MELLITUS
     Dosage: 30 MG, QD
     Route: 048
     Dates: start: 20100809
  8. STAGID [Concomitant]
     Indication: DIABETES MELLITUS
     Dosage: 2100 MG, QD
     Route: 048
     Dates: start: 20040112

REACTIONS (2)
  - DIARRHOEA [None]
  - INTESTINAL HAEMORRHAGE [None]
